FAERS Safety Report 16413746 (Version 1)
Quarter: 2019Q2

REPORT INFORMATION
  Report Type: Other
  Country: DE (occurrence: DE)
  Receive Date: 20190611
  Receipt Date: 20190611
  Transmission Date: 20190711
  Serious: Yes (Other)
  Sender: FDA-Public Use
  Company Number: DE-VISTAPHARM, INC.-VER201906-000342

PATIENT

DRUGS (5)
  1. OXYCODONE [Suspect]
     Active Substance: OXYCODONE
     Dosage: 10 MG (CONTROLLED RELEASE)
  2. PARACETAMOL [Concomitant]
     Active Substance: ACETAMINOPHEN
     Indication: ANALGESIC THERAPY
     Dosage: GREATER THAN OR EQUAL TO 1000 MG
  3. OXYCODONE [Suspect]
     Active Substance: OXYCODONE
     Indication: OSTEOARTHRITIS
     Dosage: UNKNOWN (CONTROLLED RELEASE)
  4. OXYCODONE [Suspect]
     Active Substance: OXYCODONE
     Dosage: 20 MG (CONTROLLED RELEASE)
  5. OXYCODONE [Suspect]
     Active Substance: OXYCODONE
     Dosage: 50 MG (CONTROLLED RELEASE)

REACTIONS (1)
  - Vertigo [Unknown]
